FAERS Safety Report 9445483 (Version 1)
Quarter: 2013Q3

REPORT INFORMATION
  Report Type: Spontaneous
  Country: US (occurrence: US)
  Receive Date: 20130807
  Receipt Date: 20130807
  Transmission Date: 20140515
  Serious: No
  Sender: FDA-Public Use
  Company Number: US-PFIZER INC-2013225521

PATIENT
  Age: 66 Year
  Sex: Female
  Weight: 54 kg

DRUGS (4)
  1. PREMARIN [Suspect]
     Indication: VULVOVAGINAL DRYNESS
     Dosage: 1 G, WEEKLY
     Route: 067
     Dates: end: 20130731
  2. PREMARIN [Suspect]
     Indication: VAGINAL INFECTION
  3. PREMARIN [Suspect]
     Indication: ATROPHIC VULVOVAGINITIS
  4. GEMFIBROZIL [Concomitant]
     Dosage: UNK

REACTIONS (2)
  - Inappropriate schedule of drug administration [Unknown]
  - Alopecia [Unknown]
